FAERS Safety Report 12219949 (Version 4)
Quarter: 2016Q3

REPORT INFORMATION
  Report Type: Spontaneous
  Country: US (occurrence: US)
  Receive Date: 20160330
  Receipt Date: 20160830
  Transmission Date: 20161109
  Serious: Yes (Other)
  Sender: FDA-Public Use
  Company Number: US-BEH-2016060488

PATIENT
  Age: 54 Year
  Sex: Female
  Weight: 70.3 kg

DRUGS (38)
  1. PATADAY [Concomitant]
     Active Substance: OLOPATADINE HYDROCHLORIDE
  2. DENAVIR [Concomitant]
     Active Substance: PENCICLOVIR
  3. PREDNISONE. [Concomitant]
     Active Substance: PREDNISONE
  4. CIPROFLOXACIN. [Concomitant]
     Active Substance: CIPROFLOXACIN
  5. ADVAIR HFA [Concomitant]
     Active Substance: FLUTICASONE PROPIONATE\SALMETEROL XINAFOATE
  6. BACTROBAN [Concomitant]
     Active Substance: MUPIROCIN\MUPIROCIN CALCIUM
     Route: 065
  7. TRIAMCINOLONE [Concomitant]
     Active Substance: TRIAMCINOLONE
  8. FLONASE [Concomitant]
     Active Substance: FLUTICASONE PROPIONATE
  9. RESORCINOL [Concomitant]
     Active Substance: RESORCINOL
  10. EPIPEN [Concomitant]
     Active Substance: EPINEPHRINE
  11. AMOXICILLIN. [Concomitant]
     Active Substance: AMOXICILLIN
  12. DESONIDE. [Concomitant]
     Active Substance: DESONIDE
  13. PEG 3350 [Concomitant]
     Active Substance: POLYETHYLENE GLYCOL 3350
  14. HIZENTRA [Suspect]
     Active Substance: HUMAN IMMUNOGLOBULIN G
     Indication: HYPOGAMMAGLOBULINAEMIA
     Dosage: 4 GM 20 ML VIALS
     Route: 058
  15. DIPHENHYDRAMINE. [Concomitant]
     Active Substance: DIPHENHYDRAMINE
  16. TUSSIN [Concomitant]
     Active Substance: GUAIFENESIN
  17. FLUTICASONE [Concomitant]
     Active Substance: FLUTICASONE\FLUTICASONE PROPIONATE
  18. HIZENTRA [Suspect]
     Active Substance: HUMAN IMMUNOGLOBULIN G
     Dosage: 12 G, UNK
     Route: 058
     Dates: start: 20120411
  19. SILVER SULFADIAZINE. [Concomitant]
     Active Substance: SILVER SULFADIAZINE
  20. MIRALAX [Concomitant]
     Active Substance: POLYETHYLENE GLYCOL 3350
  21. PERIDEX [Concomitant]
     Active Substance: CHLORHEXIDINE GLUCONATE
  22. VITAMIN D3 [Concomitant]
     Active Substance: CHOLECALCIFEROL
  23. XOPENEX [Concomitant]
     Active Substance: LEVALBUTEROL HYDROCHLORIDE
  24. ZETIA [Concomitant]
     Active Substance: EZETIMIBE
  25. FLUOCINONIDE. [Concomitant]
     Active Substance: FLUOCINONIDE
  26. FLUBLOK [Concomitant]
     Active Substance: INFLUENZA A VIRUS A/CALIFORNIA/7/2009 (H1N1) RECOMBINANT HEMAGGLUTININ ANTIGEN\INFLUENZA A VIRUS A/VICTORIA/361/2011 (H3N2) RECOMBINANT HEMAGGLUTININ ANTIGEN\INFLUENZA B VIRUS B/WISCONSIN/1/2010 RECOMBINANT HEMAGGLUTININ ANTIGEN
  27. DOCUSATE SODIUM. [Concomitant]
     Active Substance: DOCUSATE SODIUM
  28. CLINDAMYCIN [Concomitant]
     Active Substance: CLINDAMYCIN\CLINDAMYCIN PHOSPHATE
  29. MEGA MULTIVITAMIN MINERAL [Concomitant]
  30. ACETAMINOPHEN. [Concomitant]
     Active Substance: ACETAMINOPHEN
  31. GUAIFENESIN. [Concomitant]
     Active Substance: GUAIFENESIN
  32. VALACYCLOVIR [Concomitant]
     Active Substance: VALACYCLOVIR HYDROCHLORIDE
  33. BENZOYL PEROXIDE. [Concomitant]
     Active Substance: BENZOYL PEROXIDE
  34. LUNESTA [Concomitant]
     Active Substance: ESZOPICLONE
  35. LMX [Concomitant]
     Active Substance: LIDOCAINE
  36. GLYCERIN. [Concomitant]
     Active Substance: GLYCERIN
  37. TYLENOL                            /00724201/ [Concomitant]
  38. METAMUCIL [Concomitant]
     Active Substance: PLANTAGO SEED

REACTIONS (2)
  - Precancerous skin lesion [Recovered/Resolved]
  - Mole excision [Recovered/Resolved]

NARRATIVE: CASE EVENT DATE: 20160505
